FAERS Safety Report 7916242-4 (Version None)
Quarter: 2011Q4

REPORT INFORMATION
  Report Type: 
  Country: None (occurrence: None)
  Receive Date: 20111116
  Receipt Date: 20111104
  Transmission Date: 20120403
  Serious: No
  Sender: FDA-Public Use
  Company Number: US-BIOGENIDEC-2011BI042431

PATIENT
  Age: 62 Year
  Sex: Female

DRUGS (2)
  1. TYSABRI [Suspect]
     Indication: MULTIPLE SCLEROSIS
     Route: 042
     Dates: start: 20080801, end: 20090304
  2. TYSABRI [Suspect]
     Route: 042
     Dates: start: 20100518

REACTIONS (3)
  - BALANCE DISORDER [None]
  - FALL [None]
  - GAIT DISTURBANCE [None]
